FAERS Safety Report 7951593-9 (Version None)
Quarter: 2011Q4

REPORT INFORMATION
  Report Type: 
  Country: None (occurrence: None)
  Receive Date: 20111201
  Receipt Date: 20111124
  Transmission Date: 20120403
  Serious: Yes (Life-Threatening, Hospitalization)
  Sender: FDA-Public Use
  Company Number: DE-CELGENEUS-062-50794-11113575

PATIENT
  Age: 60 Year
  Sex: Female

DRUGS (3)
  1. ALLOPURINOL [Concomitant]
     Indication: HYPERURICAEMIA
     Route: 048
     Dates: start: 20110321
  2. VIDAZA [Suspect]
     Indication: MYELODYSPLASTIC SYNDROME
     Dosage: 120 MILLIGRAM
     Route: 058
     Dates: start: 20110321, end: 20110324
  3. GRANISETRON [Concomitant]
     Indication: ANTIEMETIC SUPPORTIVE CARE
     Route: 041
     Dates: start: 20110321, end: 20110324

REACTIONS (1)
  - ACUTE MYOCARDIAL INFARCTION [None]
